FAERS Safety Report 9457320 (Version 5)
Quarter: 2016Q1

REPORT INFORMATION
  Report Type: Report from Study
  Country: TW (occurrence: TW)
  Receive Date: 20130814
  Receipt Date: 20160218
  Transmission Date: 20160526
  Serious: Yes (Death, Hospitalization)
  Sender: FDA-Public Use
  Company Number: PHHY2013TW086214

PATIENT
  Age: 84 Year
  Sex: Male
  Weight: 52 kg

DRUGS (3)
  1. TASIGNA [Suspect]
     Active Substance: NILOTINIB
     Dosage: 300 OT, UNK
     Route: 048
     Dates: start: 20130911, end: 20131013
  2. TASIGNA [Suspect]
     Active Substance: NILOTINIB
     Indication: CHRONIC MYELOID LEUKAEMIA
     Dosage: 600 MG, DAILY
     Route: 048
     Dates: start: 20130621
  3. TASIGNA [Suspect]
     Active Substance: NILOTINIB
     Dosage: 600 OT, UNK
     Route: 048
     Dates: start: 20130723, end: 20130805

REACTIONS (6)
  - Gastrooesophageal reflux disease [Fatal]
  - Productive cough [Recovering/Resolving]
  - Fall [Recovered/Resolved]
  - Pyrexia [Recovering/Resolving]
  - Pneumonia [Recovering/Resolving]
  - Occult blood [Recovering/Resolving]

NARRATIVE: CASE EVENT DATE: 20130802
